FAERS Safety Report 16762820 (Version 1)
Quarter: 2019Q3

REPORT INFORMATION
  Report Type: Report from Study
  Country: IL (occurrence: IL)
  Receive Date: 20190901
  Receipt Date: 20190901
  Transmission Date: 20191005
  Serious: Yes (Hospitalization, Other)
  Sender: FDA-Public Use
  Company Number: IL-009507513-1901ISR005258

PATIENT
  Age: 68 Year
  Sex: Female

DRUGS (1)
  1. SITAGLIPTIN PHOSPHATE (+) METFORMIN HYDROCHLORIDE [Suspect]
     Active Substance: METFORMIN HYDROCHLORIDE\SITAGLIPTIN PHOSPHATE
     Indication: DIABETES MELLITUS
     Dosage: 50/1000 MILLIGRAM (1 TABLET), TWICE A DAY (BID)
     Route: 048
     Dates: start: 20180108

REACTIONS (15)
  - Urinary tract inflammation [Unknown]
  - Dysphonia [Unknown]
  - Vomiting [Recovered/Resolved]
  - Diabetes mellitus inadequate control [Recovered/Resolved]
  - Helicobacter infection [Unknown]
  - Sleep disorder [Unknown]
  - Nephrolithiasis [Not Recovered/Not Resolved]
  - Dental restoration failure [Unknown]
  - Adverse event [Unknown]
  - Mobility decreased [Unknown]
  - Anaemia [Unknown]
  - Asthenia [Unknown]
  - Hypersomnia [Unknown]
  - Haemorrhage [Unknown]
  - Weight decreased [Recovering/Resolving]

NARRATIVE: CASE EVENT DATE: 2018
